FAERS Safety Report 15655674 (Version 8)
Quarter: 2021Q3

REPORT INFORMATION
  Report Type: Spontaneous
  Country: US (occurrence: US)
  Receive Date: 20181126
  Receipt Date: 20210917
  Transmission Date: 20211014
  Serious: Yes (Hospitalization, Other)
  Sender: FDA-Public Use
  Company Number: US-TAKEDA-2018MPI016081

PATIENT
  Age: 69 Year
  Sex: Female

DRUGS (11)
  1. CYANOCOBALAMIN. [Concomitant]
     Active Substance: CYANOCOBALAMIN
     Dosage: UNK
  2. AZITHROMYCIN ANHYDROUS. [Concomitant]
     Active Substance: AZITHROMYCIN ANHYDROUS
     Dosage: UNK
     Route: 065
  3. ACYCLOVIR                          /00587301/ [Concomitant]
     Active Substance: ACYCLOVIR
     Dosage: UNK
     Route: 065
  4. TIZANIDINE HYDROCHLORIDE. [Concomitant]
     Active Substance: TIZANIDINE HYDROCHLORIDE
     Dosage: UNK
     Route: 065
  5. BENADRYL ALLERGY [Concomitant]
     Active Substance: DIPHENHYDRAMINE HYDROCHLORIDE
     Dosage: UNK
     Route: 065
  6. CALCIUM CARBONATE. [Concomitant]
     Active Substance: CALCIUM CARBONATE
     Dosage: UNK
     Route: 065
  7. CARISOPRODOL. [Concomitant]
     Active Substance: CARISOPRODOL
     Dosage: UNK
     Route: 065
  8. CYCLOPHOSPHAMIDE. [Concomitant]
     Active Substance: CYCLOPHOSPHAMIDE
     Indication: PRODUCT USED FOR UNKNOWN INDICATION
     Dosage: UNK
     Route: 065
  9. VALSARTAN + HIDROCLOROTIAZIDA [Concomitant]
     Active Substance: HYDROCHLOROTHIAZIDE\VALSARTAN
     Dosage: UNK
     Route: 065
  10. CETRIZINE [Concomitant]
     Active Substance: CETIRIZINE HYDROCHLORIDE
     Dosage: UNK
     Route: 065
  11. NINLARO [Suspect]
     Active Substance: IXAZOMIB CITRATE
     Indication: PLASMA CELL MYELOMA
     Dosage: 4 MILLIGRAM, 1/WEEK
     Route: 048
     Dates: start: 20171007

REACTIONS (13)
  - Immune system disorder [Unknown]
  - Oxygen saturation decreased [Unknown]
  - Increased upper airway secretion [Not Recovered/Not Resolved]
  - Off label use [Unknown]
  - Inflammation [Unknown]
  - Diarrhoea [Not Recovered/Not Resolved]
  - Bladder spasm [Unknown]
  - Tumour marker abnormal [Not Recovered/Not Resolved]
  - Respiratory syncytial virus infection [Unknown]
  - Neuropathy peripheral [Unknown]
  - Blood immunoglobulin G decreased [Unknown]
  - Nausea [Not Recovered/Not Resolved]
  - Light chain analysis increased [Not Recovered/Not Resolved]

NARRATIVE: CASE EVENT DATE: 20171007
